FAERS Safety Report 6322029-9 (Version None)
Quarter: 2009Q3

REPORT INFORMATION
  Report Type: 
  Country: None (occurrence: None)
  Receive Date: 20090821
  Receipt Date: 20090821
  Transmission Date: 20100115
  Serious: Yes (Other)
  Sender: FDA-Public Use
  Company Number: None

PATIENT
  Age: 69 Year
  Sex: Male
  Weight: 104.7809 kg

DRUGS (2)
  1. LEVAQUIN [Suspect]
     Indication: SINUSITIS
     Dosage: 1 PER DAY PO
     Route: 048
     Dates: start: 20090730, end: 20090801
  2. LEVAQUIN [Suspect]
     Indication: THERAPEUTIC RESPONSE DECREASED
     Dosage: 1 PER DAY PO
     Route: 048
     Dates: start: 20090730, end: 20090801

REACTIONS (1)
  - TENDON PAIN [None]
